FAERS Safety Report 10874316 (Version 1)
Quarter: 2015Q1

REPORT INFORMATION
  Report Type: Spontaneous
  Country: US (occurrence: None)
  Receive Date: 20150223
  Receipt Date: 20150223
  Transmission Date: 20150721
  Serious: No
  Sender: FDA-Public Use
  Company Number: None

PATIENT
  Age: 78 Year
  Sex: Male

DRUGS (13)
  1. MELOXICAM. [Concomitant]
     Active Substance: MELOXICAM
  2. BEMAZEPAM [Concomitant]
  3. ONDANSETRON [Concomitant]
     Active Substance: ONDANSETRON
  4. FLOMAX [Concomitant]
     Active Substance: TAMSULOSIN HYDROCHLORIDE
  5. LORAZEPAM. [Concomitant]
     Active Substance: LORAZEPAM
  6. PRAMIPEXOLE [Concomitant]
     Active Substance: PRAMIPEXOLE
  7. AMPYRA [Concomitant]
     Active Substance: DALFAMPRIDINE
  8. TIZANIDINE (TIZANIDINE) [Concomitant]
     Active Substance: TIZANIDINE
  9. STRALTERA [Concomitant]
  10. OMEPRAZOLE. [Concomitant]
     Active Substance: OMEPRAZOLE
  11. AMPYRA [Suspect]
     Active Substance: DALFAMPRIDINE
     Indication: MULTIPLE SCLEROSIS
     Route: 048
     Dates: start: 201007, end: 201310
  12. AUBAGIO [Concomitant]
     Active Substance: TERIFLUNOMIDE
  13. VICODIN [Concomitant]
     Active Substance: ACETAMINOPHEN\HYDROCODONE BITARTRATE

REACTIONS (1)
  - Drug ineffective [None]

NARRATIVE: CASE EVENT DATE: 20131120
